FAERS Safety Report 6981866-8 (Version None)
Quarter: 2010Q3

REPORT INFORMATION
  Report Type: 
  Country: None (occurrence: None)
  Receive Date: 20100909
  Receipt Date: 20100826
  Transmission Date: 20110219
  Serious: Yes (Hospitalization)
  Sender: FDA-Public Use
  Company Number: 2010AL000120

PATIENT
  Age: 64 Year
  Sex: Male
  Weight: 71.5 kg

DRUGS (1)
  1. PRALATREXATE (PRALATREXATE) [Suspect]
     Indication: BLADDER CANCER
     Dosage: 273.75 MG;QOW;IV
     Route: 042
     Dates: start: 20091013, end: 20100713

REACTIONS (10)
  - ABDOMINAL PAIN [None]
  - ALANINE AMINOTRANSFERASE INCREASED [None]
  - ASPARTATE AMINOTRANSFERASE INCREASED [None]
  - BILIARY DILATATION [None]
  - BLOOD ALKALINE PHOSPHATASE INCREASED [None]
  - GAMMA-GLUTAMYLTRANSFERASE INCREASED [None]
  - HEPATOTOXICITY [None]
  - JAUNDICE [None]
  - RED BLOOD CELL COUNT DECREASED [None]
  - VOMITING [None]
